FAERS Safety Report 14459658 (Version 1)
Quarter: 2018Q1

REPORT INFORMATION
  Report Type: Report from Study
  Country: US (occurrence: US)
  Receive Date: 20180130
  Receipt Date: 20180130
  Transmission Date: 20180509
  Serious: No
  Sender: FDA-Public Use
  Company Number: US-THERATECHNOLOGIES, INC.-TH-2018-00176

PATIENT

DRUGS (16)
  1. EGRIFTA [Suspect]
     Active Substance: TESAMORELIN
     Indication: HIV INFECTION
     Dosage: 2 MG MILLIGRAM(S), DAILY DOSE
     Route: 058
     Dates: start: 20171018
  2. TRAZODONE [Concomitant]
     Active Substance: TRAZODONE HYDROCHLORIDE
     Dosage: 50 MG MILLIGRAM(S), UNK
     Dates: start: 20171201
  3. OXYCODONE [Concomitant]
     Active Substance: OXYCODONE
     Dosage: 30 MG MILLIGRAM(S), UNK
     Dates: start: 20171229
  4. MORPHINE SULPHATE [Concomitant]
     Active Substance: MORPHINE SULFATE
     Dosage: 30 MG MILLIGRAM(S), UNK
     Dates: start: 20171229
  5. TIVICAY [Concomitant]
     Active Substance: DOLUTEGRAVIR SODIUM
     Dosage: 50 MG MILLIGRAM(S), UNK
     Dates: start: 20171115
  6. MORPHINE SULPHATE [Concomitant]
     Active Substance: MORPHINE SULFATE
     Dosage: 30 UNK, UNK
     Dates: start: 20171228
  7. VIREAD [Concomitant]
     Active Substance: TENOFOVIR DISOPROXIL FUMARATE
     Dosage: 250 MG MILLIGRAM(S), UNK
     Dates: start: 20171017
  8. TRAZODONE [Concomitant]
     Active Substance: TRAZODONE HYDROCHLORIDE
     Dosage: 50 UNK, UNK
     Dates: start: 20171229
  9. OXYCODONE [Concomitant]
     Active Substance: OXYCODONE
     Dosage: 30 MG MILLIGRAM(S), UNK
     Dates: start: 20170115
  10. MORPHINE SULPHATE [Concomitant]
     Active Substance: MORPHINE SULFATE
     Dosage: 30 MG MILLIGRAM(S), UNK
     Dates: start: 20171115
  11. ACYCLOVIR                          /00587301/ [Concomitant]
     Active Substance: ACYCLOVIR
     Dosage: 200 MG MILLIGRAM(S), UNK
     Dates: start: 20171115
  12. TRAZODONE [Concomitant]
     Active Substance: TRAZODONE HYDROCHLORIDE
     Dosage: 50 MG MILLIGRAM(S), UNK
     Dates: start: 20171115
  13. VIREAD [Concomitant]
     Active Substance: TENOFOVIR DISOPROXIL FUMARATE
     Dosage: 300 MG MILLIGRAM(S), UNK
     Dates: start: 20171115
  14. VITAMIN B12 [Concomitant]
     Active Substance: CYANOCOBALAMIN
     Dosage: 1000 MICROGRAM(S), UNK
     Dates: start: 20171017
  15. GERITOL                            /00508001/ [Concomitant]
     Dosage: UNK
     Dates: start: 20171017
  16. OTHER THERAPEUTIC PRODUCTS [Concomitant]
     Active Substance: UNSPECIFIED INGREDIENT
     Dosage: 1000 MG MILLIGRAM(S), UNK
     Dates: start: 20171017

REACTIONS (1)
  - Hypoaesthesia [Unknown]
